FAERS Safety Report 6402913-8 (Version None)
Quarter: 2009Q4

REPORT INFORMATION
  Report Type: 
  Country: None (occurrence: None)
  Receive Date: 20091014
  Receipt Date: 20091014
  Transmission Date: 20100525
  Serious: Yes (Death)
  Sender: FDA-Public Use
  Company Number: None

PATIENT
  Sex: Female
  Weight: 55.9 kg

DRUGS (13)
  1. ERBITUX [Suspect]
     Indication: COLORECTAL CANCER METASTATIC
     Dosage: PT ONLY RECEIVED 50MG OF 636MG DOS ONE TIME IV  REACTION WITH FIRST DOSE
     Route: 042
  2. AMLODIPINE [Concomitant]
  3. BONIVA [Concomitant]
  4. CALCIUM [Concomitant]
  5. MAGIC MOUTHWASH [Concomitant]
  6. METFORMIN [Concomitant]
  7. MULTI-VITAMIN [Concomitant]
  8. POTASSIUM CHLORIDE [Concomitant]
  9. PREDNISONE [Concomitant]
  10. PROCHLORPERAZINE [Concomitant]
  11. TIMOLOL MALEATE [Concomitant]
  12. TRAMADOL HCL [Concomitant]
  13. ACETAMINOPHEN [Concomitant]

REACTIONS (8)
  - BLOOD PRESSURE IMMEASURABLE [None]
  - CAROTID PULSE DECREASED [None]
  - CYANOSIS [None]
  - PRURITUS [None]
  - PULSE ABSENT [None]
  - UNRESPONSIVE TO STIMULI [None]
  - URINARY INCONTINENCE [None]
  - VOMITING [None]
